FAERS Safety Report 23123107 (Version 1)
Quarter: 2023Q4

REPORT INFORMATION
  Report Type: Report from Study
  Country: CA (occurrence: CA)
  Receive Date: 20231030
  Receipt Date: 20231030
  Transmission Date: 20240110
  Serious: Yes (Other)
  Sender: FDA-Public Use
  Company Number: CA-JAZZ-2022-CA-033299

PATIENT
  Sex: Female
  Weight: 90.249 kg

DRUGS (3)
  1. XYREM [Suspect]
     Active Substance: SODIUM OXYBATE
     Indication: Narcolepsy
     Dosage: 2.25 GRAM, BID
     Route: 048
     Dates: start: 20220620
  2. XYREM [Suspect]
     Active Substance: SODIUM OXYBATE
     Dosage: 3 GRAM, BID
     Route: 048
     Dates: start: 20220704
  3. SOLRIAMFETOL [Concomitant]
     Active Substance: SOLRIAMFETOL
     Dosage: 50 MILLIGRAM

REACTIONS (2)
  - Loss of consciousness [Unknown]
  - Intentional dose omission [Unknown]
